FAERS Safety Report 10066145 (Version 1)
Quarter: 2014Q2

REPORT INFORMATION
  Report Type: Spontaneous
  Country: US (occurrence: US)
  Receive Date: 20140408
  Receipt Date: 20140408
  Transmission Date: 20141212
  Serious: No
  Sender: FDA-Public Use
  Company Number: US-PFIZER INC-2014096964

PATIENT
  Age: 29 Year
  Sex: Male
  Weight: 104.31 kg

DRUGS (1)
  1. NEURONTIN [Suspect]
     Indication: SPINAL CORD INJURY
     Dosage: UNK

REACTIONS (1)
  - Drug ineffective [Unknown]
